FAERS Safety Report 5924284-3 (Version None)
Quarter: 2008Q4

REPORT INFORMATION
  Report Type: 
  Country: None (occurrence: None)
  Receive Date: 20081020
  Receipt Date: 20081010
  Transmission Date: 20090506
  Serious: Yes (Other)
  Sender: FDA-Public Use
  Company Number: US-ELI_LILLY_AND_COMPANY-US200810002859

PATIENT
  Sex: Female
  Weight: 92.517 kg

DRUGS (10)
  1. BYETTA [Suspect]
     Indication: TYPE 2 DIABETES MELLITUS
     Dosage: 5 UG, 2/D
     Route: 058
     Dates: start: 20070201, end: 20070101
  2. BYETTA [Suspect]
     Dosage: 10 UG, 2/D
     Route: 058
     Dates: start: 20070401, end: 20080601
  3. BYETTA [Suspect]
     Dosage: 5 UG, 2/D
     Route: 058
     Dates: start: 20080601, end: 20080601
  4. BYETTA [Suspect]
     Dosage: 10 UG, 2/D
     Route: 058
     Dates: start: 20080601, end: 20080901
  5. BYETTA [Suspect]
     Dosage: 10 UG, 2/D
     Route: 058
     Dates: start: 20080901
  6. DIASPASMYL [Concomitant]
     Indication: GASTROINTESTINAL PAIN
     Dosage: 0.25 MG, AS NEEDED
     Dates: start: 20080601
  7. DICYCLOMINE [Concomitant]
     Indication: GASTROINTESTINAL PAIN
     Dosage: 10 MG, 2/D
     Dates: start: 20080901
  8. CLINDEX [Concomitant]
     Indication: GASTROINTESTINAL PAIN
     Dosage: UNK, 2/D
     Dates: start: 20080601
  9. PROPRANOLOL [Concomitant]
     Indication: MIGRAINE
     Dosage: 20 MG, 2/D
     Dates: start: 20071001
  10. BACLOFEN [Concomitant]
     Indication: GASTROINTESTINAL PAIN
     Dosage: 10 UG, DAILY (1/D)
     Dates: start: 20070701

REACTIONS (17)
  - ABDOMINAL PAIN [None]
  - DECREASED APPETITE [None]
  - DIARRHOEA [None]
  - EAR INFECTION [None]
  - EYE DISORDER [None]
  - FATIGUE [None]
  - FEELING ABNORMAL [None]
  - INTESTINAL ISCHAEMIA [None]
  - IRRITABILITY [None]
  - IRRITABLE BOWEL SYNDROME [None]
  - MIGRAINE [None]
  - MUSCLE SPASMS [None]
  - NAUSEA [None]
  - NECK PAIN [None]
  - PITUITARY ENLARGEMENT [None]
  - RECTAL HAEMORRHAGE [None]
  - VOMITING [None]
